FAERS Safety Report 8805178 (Version 2)
Quarter: 2015Q1

REPORT INFORMATION
  Report Type: Report from Study
  Country: US (occurrence: US)
  Receive Date: 20120924
  Receipt Date: 20150327
  Transmission Date: 20150721
  Serious: Yes (Death)
  Sender: FDA-Public Use
  Company Number: US-ROCHE-1126307

PATIENT
  Sex: Female
  Weight: 82.63 kg

DRUGS (6)
  1. AVASTIN [Suspect]
     Active Substance: BEVACIZUMAB
     Indication: BRAIN NEOPLASM MALIGNANT
     Route: 042
     Dates: start: 20080812
  2. COGENTIN [Concomitant]
     Active Substance: BENZTROPINE MESYLATE
     Route: 048
  3. KYTRIL [Concomitant]
     Active Substance: GRANISETRON HYDROCHLORIDE
     Route: 042
  4. CAMPTOSAR [Concomitant]
     Active Substance: IRINOTECAN HYDROCHLORIDE
     Route: 042
  5. TYLENOL [Concomitant]
     Active Substance: ACETAMINOPHEN
  6. DECADRON [Concomitant]
     Active Substance: DEXAMETHASONE
     Route: 047

REACTIONS (9)
  - Speech disorder [Unknown]
  - Fatigue [Unknown]
  - Death [Fatal]
  - Diarrhoea [Unknown]
  - Pain [Unknown]
  - Erythema [Unknown]
  - Abasia [Unknown]
  - Decreased appetite [Unknown]
  - Seizure [Unknown]
